FAERS Safety Report 18600300 (Version 1)
Quarter: 2020Q4

REPORT INFORMATION
  Report Type: Spontaneous
  Country: US (occurrence: US)
  Receive Date: 20201209
  Receipt Date: 20201209
  Transmission Date: 20210114
  Serious: Yes (Death)
  Sender: FDA-Public Use
  Company Number: None

PATIENT
  Age: 56 Year
  Sex: Female

DRUGS (1)
  1. MIDODRINE 5MG TABLETS [Suspect]
     Active Substance: MIDODRINE HYDROCHLORIDE
     Dosage: ?          OTHER DOSE:1 T - 2 TS (10MG);OTHER FREQUENCY:BID AM + PM;?
     Dates: start: 20200811

REACTIONS (1)
  - Death [None]

NARRATIVE: CASE EVENT DATE: 20201206
